FAERS Safety Report 8128992-8 (Version None)
Quarter: 2012Q1

REPORT INFORMATION
  Report Type: 
  Country: None (occurrence: None)
  Receive Date: 20120210
  Receipt Date: 20120206
  Transmission Date: 20120608
  Serious: Yes (Hospitalization)
  Sender: FDA-Public Use
  Company Number: US-GILEAD-2011-0048591

PATIENT
  Sex: Female

DRUGS (13)
  1. MAGNESIUM [Concomitant]
  2. POTASSIUM [Concomitant]
  3. LETAIRIS [Suspect]
     Indication: PULMONARY HYPERTENSION
     Dosage: 10 MG, UNK
     Route: 048
     Dates: start: 20101210
  4. POTASSIUM CHLORIDE [Concomitant]
  5. CALCIUM AND AMP [Concomitant]
  6. SPIRIVA [Concomitant]
  7. PULMICORT FLEXHALER [Concomitant]
  8. LETAIRIS [Suspect]
     Dosage: 10 UNK, UNK
     Route: 048
  9. LASIX [Concomitant]
  10. ESTRATAB [Concomitant]
  11. PRILOSEC [Concomitant]
  12. TYLENOL-500 [Concomitant]
  13. VITAMIN D [Concomitant]

REACTIONS (5)
  - THROMBOSIS [None]
  - FLUID RETENTION [None]
  - CARDIAC DISORDER [None]
  - CARDIAC MURMUR [None]
  - DYSPNOEA [None]
